FAERS Safety Report 4653353-3 (Version None)
Quarter: 2005Q2

REPORT INFORMATION
  Report Type: 
  Country: None (occurrence: None)
  Receive Date: 20050503
  Receipt Date: 20050420
  Transmission Date: 20051028
  Serious: No
  Sender: FDA-Public Use
  Company Number: 02100-JPN-05-0175

PATIENT
  Sex: Female

DRUGS (2)
  1. CILOSTAZOL [Suspect]
     Indication: ATHEROSCLEROSIS OBLITERANS
     Route: 048
  2. LIMAPROST ALFADEX [Suspect]
     Route: 048

REACTIONS (1)
  - BRAIN STEM HAEMORRHAGE [None]
